FAERS Safety Report 20343069 (Version 2)
Quarter: 2022Q1

REPORT INFORMATION
  Report Type: Report from Study
  Country: US (occurrence: US)
  Receive Date: 20220117
  Receipt Date: 20220124
  Transmission Date: 20220423
  Serious: Yes (Death, Other)
  Sender: FDA-Public Use
  Company Number: US-BoehringerIngelheim-2022-BI-107939

PATIENT
  Age: 80 Year
  Sex: Female

DRUGS (1)
  1. GILOTRIF [Suspect]
     Active Substance: AFATINIB
     Indication: Lung neoplasm malignant
     Route: 048
     Dates: start: 20210412

REACTIONS (1)
  - Death [Fatal]

NARRATIVE: CASE EVENT DATE: 20220113
